FAERS Safety Report 11927428 (Version 1)
Quarter: 2016Q1

REPORT INFORMATION
  Report Type: Spontaneous
  Country: CA (occurrence: CA)
  Receive Date: 20160119
  Receipt Date: 20160119
  Transmission Date: 20160526
  Serious: Yes (Hospitalization)
  Sender: FDA-Public Use
  Company Number: CA-ABBVIE-16K-028-1539490-00

PATIENT
  Age: 70 Year
  Sex: Female

DRUGS (5)
  1. ENBREL [Suspect]
     Active Substance: ETANERCEPT
     Route: 058
  2. NEORAL [Suspect]
     Active Substance: CYCLOSPORINE
     Indication: PSORIASIS
     Route: 048
  3. STELARA [Suspect]
     Active Substance: USTEKINUMAB
     Indication: PRODUCT USED FOR UNKNOWN INDICATION
     Route: 058
  4. ENBREL [Suspect]
     Active Substance: ETANERCEPT
     Indication: PRODUCT USED FOR UNKNOWN INDICATION
     Route: 065
  5. HUMIRA [Suspect]
     Active Substance: ADALIMUMAB
     Indication: PRODUCT USED FOR UNKNOWN INDICATION
     Route: 058

REACTIONS (19)
  - Lung disorder [Unknown]
  - Crying [Unknown]
  - Dyspnoea [Unknown]
  - Skin exfoliation [Unknown]
  - Pharyngeal oedema [Unknown]
  - Fatigue [Unknown]
  - Nasal septum deviation [Unknown]
  - Weight increased [Unknown]
  - Secretion discharge [Unknown]
  - Swelling face [Unknown]
  - Dry skin [Unknown]
  - Psoriasis [Unknown]
  - Blood creatinine increased [Unknown]
  - Cough [Unknown]
  - Asthma [Unknown]
  - Depression [Unknown]
  - Hypersensitivity [Unknown]
  - Paraesthesia [Unknown]
  - Sleep apnoea syndrome [Unknown]
